FAERS Safety Report 7791461-9 (Version None)
Quarter: 2011Q4

REPORT INFORMATION
  Report Type: 
  Country: None (occurrence: None)
  Receive Date: 20111003
  Receipt Date: 20110923
  Transmission Date: 20120403
  Serious: Yes (Hospitalization)
  Sender: FDA-Public Use
  Company Number: US-UCBSA-041473

PATIENT
  Age: 36 Year
  Sex: Female
  Weight: 104 kg

DRUGS (9)
  1. KEPPRA [Suspect]
     Route: 048
     Dates: start: 20100215
  2. ZONISAMIDE [Concomitant]
     Indication: CONVULSION
  3. CARBAMAZEPINE [Concomitant]
     Indication: CONVULSION
  4. KEPPRA [Suspect]
     Indication: EPILEPSY
     Route: 048
     Dates: start: 20100215
  5. VIMPAT [Suspect]
     Route: 048
     Dates: start: 20100210
  6. VIMPAT [Suspect]
     Indication: CONVULSION
     Route: 048
     Dates: start: 20101026
  7. CLONAZEPAM [Concomitant]
     Indication: CONVULSION
  8. PHENYTOIN [Concomitant]
     Indication: CONVULSION
  9. TOPIRAMATE [Concomitant]
     Indication: CONVULSION

REACTIONS (2)
  - CONVULSION [None]
  - PYREXIA [None]
